FAERS Safety Report 14311702 (Version 1)
Quarter: 2017Q4

REPORT INFORMATION
  Report Type: Spontaneous
  Country: US (occurrence: US)
  Receive Date: 20171221
  Receipt Date: 20171221
  Transmission Date: 20180321
  Serious: No
  Sender: FDA-Public Use
  Company Number: US-009507513-1712USA007466

PATIENT
  Sex: Male

DRUGS (1)
  1. SYLATRON [Suspect]
     Active Substance: PEGINTERFERON ALFA-2B
     Indication: MALIGNANT MELANOMA
     Dosage: 200 MICROGRAM, QW
     Route: 058

REACTIONS (7)
  - Fatigue [Unknown]
  - Poor quality sleep [Unknown]
  - Disturbance in attention [Unknown]
  - Anxiety [Unknown]
  - Memory impairment [Unknown]
  - Irritability [Unknown]
  - Depression [Unknown]
